FAERS Safety Report 21935985 (Version 1)
Quarter: 2023Q1

REPORT INFORMATION
  Report Type: Spontaneous
  Country: US (occurrence: US)
  Receive Date: 20230201
  Receipt Date: 20230201
  Transmission Date: 20230418
  Serious: Yes (Other)
  Sender: FDA-Public Use
  Company Number: US-CELLTRION INC.-2023US001978

PATIENT

DRUGS (2)
  1. TRUXIMA [Suspect]
     Active Substance: RITUXIMAB-ABBS
     Indication: Stiff person syndrome
     Dosage: 375 MG/M2 (TOTAL OF 4 DOSES WITHIN APPROXIMATELY THE LAST 6 WEEKS)
  2. TRUXIMA [Suspect]
     Active Substance: RITUXIMAB-ABBS
     Dosage: 398MG FOR 2 DAYS

REACTIONS (4)
  - Stiff person syndrome [Unknown]
  - Hypokalaemia [Unknown]
  - Hypophosphataemia [Unknown]
  - Off label use [Unknown]
